FAERS Safety Report 7463041 (Version 4)
Quarter: 2014Q1

REPORT INFORMATION
  Report Type: Spontaneous
  Country: US (occurrence: US)
  Receive Date: 20100709
  Receipt Date: 20140128
  Transmission Date: 20141002
  Serious: Yes (Hospitalization, Other)
  Sender: FDA-Public Use
  Company Number: US-ROCHE-695944

PATIENT
  Age: 16 Year
  Sex: Male
  Weight: 83.9 kg

DRUGS (3)
  1. ACCUTANE [Suspect]
     Indication: ACNE CYSTIC
     Route: 048
     Dates: start: 19910522, end: 19910603
  2. ACCUTANE [Suspect]
     Route: 048
     Dates: start: 19910610, end: 19911113
  3. ACCUTANE [Suspect]
     Route: 048
     Dates: start: 19980130, end: 19980611

REACTIONS (17)
  - Thrombosis [Unknown]
  - Pancreatitis acute [Unknown]
  - Crohn^s disease [Unknown]
  - Colitis ulcerative [Unknown]
  - Inflammatory bowel disease [Unknown]
  - Depression [Unknown]
  - Anal fissure [Unknown]
  - Cheilitis [Unknown]
  - Eye infection staphylococcal [Recovered/Resolved]
  - Contusion [Unknown]
  - Contusion [Unknown]
  - Stomatitis [Unknown]
  - Tinea infection [Unknown]
  - Myalgia [Unknown]
  - Back pain [Unknown]
  - Vision blurred [Unknown]
  - Lip dry [Unknown]
